FAERS Safety Report 10912220 (Version 1)
Quarter: 2015Q1

REPORT INFORMATION
  Report Type: Spontaneous
  Country: JP (occurrence: JP)
  Receive Date: 20150313
  Receipt Date: 20150313
  Transmission Date: 20150721
  Serious: Yes (Death, Other)
  Sender: FDA-Public Use
  Company Number: JP-CIPLA LTD.-2015JP02040

PATIENT

DRUGS (3)
  1. ETOPOSIDE. [Suspect]
     Active Substance: ETOPOSIDE
     Indication: OVARIAN CANCER
     Dosage: 50 MG, QD, FROM DAY 1 TO DAY 21, REPEATED EVERY 28 DAYS UP TO 6 CYCLES
     Route: 048
  2. IRINOTECAN [Suspect]
     Active Substance: IRINOTECAN
     Indication: OVARIAN CANCER
     Dosage: 70 MG/M2, QD, OVER 90 MIN ON DAYS 1 AND 15, REPEATED EVERY 28 DAYS UP TO 6 CYCLES
     Route: 042
  3. ETOPOSIDE. [Suspect]
     Active Substance: ETOPOSIDE
     Dosage: 100 MG, QD,  FROM DAY 1 TO DAY 21, REPEATED EVERY 28 DAYS UP TO 6 CYCLES
     Route: 048

REACTIONS (2)
  - Infection [Unknown]
  - Disseminated intravascular coagulation [Fatal]
